FAERS Safety Report 4644414-3 (Version None)
Quarter: 2005Q2

REPORT INFORMATION
  Report Type: 
  Country: None (occurrence: None)
  Receive Date: 20050331
  Receipt Date: 20041223
  Transmission Date: 20051028
  Serious: No
  Sender: FDA-Public Use
  Company Number: 04P-163-0282706-00

PATIENT
  Age: 71 Year
  Sex: Female
  Weight: 68.0396 kg

DRUGS (8)
  1. HUMIRA [Suspect]
     Indication: RHEUMATOID ARTHRITIS
     Dosage: 40 MG, 1 IN 2 WK, SUBCUTANEOUS
     Route: 058
     Dates: start: 20041031
  2. CELECOXIB [Concomitant]
  3. ATORVASTATIN CALCIUM [Concomitant]
  4. FLUOXETINE [Concomitant]
  5. TRAZADONE [Concomitant]
  6. HYDROCODONE BITARTRATE [Concomitant]
  7. ZOLPIDEM TARTRATE [Concomitant]
  8. ALENDRONATE SODIUM [Concomitant]

REACTIONS (1)
  - LOCAL SWELLING [None]
